FAERS Safety Report 15628961 (Version 1)
Quarter: 2018Q4

REPORT INFORMATION
  Report Type: Spontaneous
  Country: US (occurrence: US)
  Receive Date: 20181116
  Receipt Date: 20181116
  Transmission Date: 20190205
  Serious: No
  Sender: FDA-Public Use
  Company Number: US-VIFOR (INTERNATIONAL) INC.-VIT-2018-10806

PATIENT
  Age: 69 Year
  Sex: Female

DRUGS (28)
  1. PROBIOTIC ACIDOPHILUS EX [Concomitant]
  2. PROGRAF [Concomitant]
     Active Substance: TACROLIMUS\TACROLIMUS ANHYDROUS
  3. VALIUM [Concomitant]
     Active Substance: DIAZEPAM
  4. VITAMIN D [Concomitant]
     Active Substance: CHOLECALCIFEROL
  5. BIOTIN [Concomitant]
     Active Substance: BIOTIN
  6. SIMETHICONE (DIMETHICONE) [Concomitant]
     Active Substance: DIMETHICONE
  7. VELTASSA [Suspect]
     Active Substance: PATIROMER
     Dosage: ONCE OR TWICE A WEEK
     Route: 048
     Dates: start: 201810
  8. ZOFRAN [Concomitant]
     Active Substance: ONDANSETRON HYDROCHLORIDE
  9. ACETAMINOPHEN. [Concomitant]
     Active Substance: ACETAMINOPHEN
  10. LEVOTHYROXINE SODIUM. [Concomitant]
     Active Substance: LEVOTHYROXINE SODIUM
  11. ASPIRIN. [Concomitant]
     Active Substance: ASPIRIN
  12. CELLCEPT [Concomitant]
     Active Substance: MYCOPHENOLATE MOFETIL\MYCOPHENOLATE MOFETIL HYDROCHLORIDE
  13. VITAMIN B12 [Concomitant]
     Active Substance: CYANOCOBALAMIN
  14. RETIN-A [Concomitant]
     Active Substance: TRETINOIN
  15. MULTIPLE VITAMIN [Concomitant]
     Active Substance: VITAMINS
  16. SODIUM BICARBONATE. [Concomitant]
     Active Substance: SODIUM BICARBONATE
  17. VELTASSA [Suspect]
     Active Substance: PATIROMER
     Indication: HYPERKALAEMIA
     Route: 048
     Dates: start: 20160601
  18. PROMETHAZINE HCL [Concomitant]
     Active Substance: PROMETHAZINE HYDROCHLORIDE
  19. PREDNISONE. [Concomitant]
     Active Substance: PREDNISONE
  20. CITRACAL/VITAMIN D [Concomitant]
  21. TUMS [Concomitant]
     Active Substance: CALCIUM CARBONATE
  22. SODIUM POLYSTYRENE SULPHONATE [Concomitant]
     Active Substance: SODIUM POLYSTYRENE SULFONATE
  23. LOPERAMIDE HCL [Concomitant]
     Active Substance: LOPERAMIDE HYDROCHLORIDE
  24. FISH OIL BURP LESS [Concomitant]
  25. RANITIDINE HCL [Concomitant]
     Active Substance: RANITIDINE HYDROCHLORIDE
  26. CARVEDILOL. [Concomitant]
     Active Substance: CARVEDILOL
  27. METOLAZONE. [Concomitant]
     Active Substance: METOLAZONE
  28. MAGNESIUM [Concomitant]
     Active Substance: MAGNESIUM

REACTIONS (2)
  - Diarrhoea [Not Recovered/Not Resolved]
  - Off label use [Unknown]

NARRATIVE: CASE EVENT DATE: 201810
